FAERS Safety Report 6410819-3 (Version None)
Quarter: 2009Q4

REPORT INFORMATION
  Report Type: 
  Country: None (occurrence: None)
  Receive Date: 20091020
  Receipt Date: 20091020
  Transmission Date: 20100525
  Serious: Yes (Hospitalization)
  Sender: FDA-Public Use
  Company Number: None

PATIENT
  Sex: Male
  Weight: 40.3701 kg

DRUGS (4)
  1. RISPERIDONE [Suspect]
     Indication: AUTISM
     Dosage: 2 MG TID PO
     Route: 048
     Dates: start: 20091013, end: 20091014
  2. RISPERIDONE [Suspect]
     Indication: AUTISM
     Dosage: 0.5 MG BID-TID PO
     Route: 048
  3. RISPERIDONE [Suspect]
     Indication: SELF INJURIOUS BEHAVIOUR
     Dosage: 0.5 MG BID-TID PO
     Route: 048
  4. BENADRYL [Concomitant]

REACTIONS (3)
  - CEREBROVASCULAR ACCIDENT [None]
  - DYSTONIA [None]
  - PRODUCT SUBSTITUTION ISSUE [None]
